FAERS Safety Report 4263779-8 (Version None)
Quarter: 2004Q1

REPORT INFORMATION
  Report Type: 
  Country: None (occurrence: None)
  Receive Date: 20040102
  Receipt Date: 20031218
  Transmission Date: 20041129
  Serious: Yes (Hospitalization)
  Sender: FDA-Public Use
  Company Number: USA031255107

PATIENT
  Age: 57 Year
  Sex: Female

DRUGS (2)
  1. EVISTA [Suspect]
     Dates: start: 20010101
  2. FOSAMAX [Concomitant]

REACTIONS (2)
  - BONE DENSITY DECREASED [None]
  - HIP ARTHROPLASTY [None]
